FAERS Safety Report 6941432-7 (Version None)
Quarter: 2010Q3

REPORT INFORMATION
  Report Type: 
  Country: None (occurrence: None)
  Receive Date: 20100825
  Receipt Date: 20100816
  Transmission Date: 20110219
  Serious: Yes (Hospitalization)
  Sender: FDA-Public Use
  Company Number: ES-TEVA-245310ISR

PATIENT
  Age: 80 Year
  Sex: Female

DRUGS (10)
  1. CODEINE SULFATE [Suspect]
     Route: 048
     Dates: start: 20100525, end: 20100709
  2. ENALAPRIL [Suspect]
     Indication: HYPERTENSION
     Route: 048
     Dates: start: 20100525, end: 20100709
  3. OMEPRAZOLE [Suspect]
     Route: 048
     Dates: start: 20100525, end: 20100709
  4. ASPIRIN [Suspect]
     Route: 048
     Dates: start: 20100525, end: 20100709
  5. CALCIUM [Suspect]
     Route: 048
     Dates: start: 20100525, end: 20100709
  6. BROMAZEPAM [Suspect]
     Route: 048
     Dates: start: 20100525, end: 20100709
  7. DOMPERIDONE [Suspect]
     Indication: VOMITING
     Route: 048
     Dates: start: 20100525, end: 20100709
  8. DIPYRONE TAB [Suspect]
     Indication: BACK PAIN
     Route: 048
     Dates: start: 20100525, end: 20100709
  9. TIOTROPIUM BROMIDE [Suspect]
     Indication: BRONCHOSPASM
     Dosage: 18 UG
     Route: 055
     Dates: start: 20100525, end: 20100709
  10. METHYLPREDNISOLONE [Suspect]
     Indication: BRONCHOSPASM
     Dosage: 18 UG
     Route: 048
     Dates: start: 20100525, end: 20100704

REACTIONS (1)
  - STEVENS-JOHNSON SYNDROME [None]
